FAERS Safety Report 8016580-3 (Version None)
Quarter: 2011Q4

REPORT INFORMATION
  Report Type: 
  Country: None (occurrence: None)
  Receive Date: 20111230
  Receipt Date: 20111221
  Transmission Date: 20120403
  Serious: Yes (Hospitalization)
  Sender: FDA-Public Use
  Company Number: US-ASTRAZENECA-2009UW07971

PATIENT
  Age: 53 Year
  Sex: Male

DRUGS (1)
  1. NEXIUM [Suspect]
     Route: 048

REACTIONS (7)
  - DIVERTICULITIS [None]
  - DIARRHOEA [None]
  - ADVERSE EVENT [None]
  - GASTRIC DISORDER [None]
  - MALAISE [None]
  - DRUG DOSE OMISSION [None]
  - MUSCLE SPASMS [None]
